FAERS Safety Report 9558965 (Version 1)
Quarter: 2013Q3

REPORT INFORMATION
  Report Type: Spontaneous
  Country: US (occurrence: US)
  Receive Date: 20130927
  Receipt Date: 20130927
  Transmission Date: 20140515
  Serious: Yes (Other)
  Sender: FDA-Public Use
  Company Number: US-BIOGENIDEC-2013BI090989

PATIENT
  Age: 37 Year
  Sex: Female

DRUGS (8)
  1. TYSABRI [Suspect]
     Indication: MULTIPLE SCLEROSIS
     Route: 042
  2. BACLOFEN [Concomitant]
  3. VALIUM [Concomitant]
  4. DDAVP [Concomitant]
  5. CYMBALTA [Concomitant]
  6. LEXAPRO [Concomitant]
  7. PERCOCET [Concomitant]
  8. MARIJUANA [Concomitant]

REACTIONS (1)
  - Convulsion [Unknown]
